FAERS Safety Report 10464120 (Version 1)
Quarter: 2014Q3

REPORT INFORMATION
  Report Type: Spontaneous
  Country: IN (occurrence: None)
  Receive Date: 20140917
  Receipt Date: 20140917
  Transmission Date: 20150326
  Serious: Yes (Hospitalization)
  Sender: FDA-Public Use
  Company Number: IPC201409-000466

PATIENT
  Age: 18 Year
  Sex: Female

DRUGS (2)
  1. ATENOLOL (ATENOLOL) (ATENOLOL) [Suspect]
     Active Substance: ATENOLOL
  2. AMLODIPINE BESILATE (AMLODIPINE BESILATE) (AMLODIPINE BESILATE) [Suspect]
     Active Substance: AMLODIPINE BESYLATE

REACTIONS (11)
  - Peripheral coldness [None]
  - Hypotension [None]
  - Renal failure acute [None]
  - Pulse abnormal [None]
  - Acute respiratory distress syndrome [None]
  - Toxicity to various agents [None]
  - Metabolic acidosis [None]
  - Sinus tachycardia [None]
  - Intentional overdose [None]
  - Shock [None]
  - Anxiety [None]
